FAERS Safety Report 4612491-1 (Version None)
Quarter: 2005Q1

REPORT INFORMATION
  Report Type: 
  Country: None (occurrence: None)
  Receive Date: 20050316
  Receipt Date: 20050316
  Transmission Date: 20050727
  Serious: No
  Sender: FDA-Public Use
  Company Number: None

PATIENT

DRUGS (1)
  1. ACCUPRIL [Suspect]
     Dosage: 1 PO QD
     Route: 048

REACTIONS (1)
  - ILL-DEFINED DISORDER [None]
